FAERS Safety Report 20967529 (Version 1)
Quarter: 2022Q2

REPORT INFORMATION
  Report Type: Spontaneous
  Country: US (occurrence: US)
  Receive Date: 20220616
  Receipt Date: 20220616
  Transmission Date: 20220720
  Serious: No
  Sender: FDA-Public Use
  Company Number: US-PFIZER INC-202200722307

PATIENT
  Age: 66 Year
  Sex: Female
  Weight: 56.236 kg

DRUGS (1)
  1. IBRANCE [Suspect]
     Active Substance: PALBOCICLIB
     Indication: Breast cancer female
     Dosage: 75 MG, CYCLIC (TAB BY MOUTH ONE TIME DAILY DAYS 1 THROUGH 18 FOLLOWED BY 10 DAYS OFF)
     Route: 048

REACTIONS (2)
  - Product prescribing error [Unknown]
  - Neutrophil count decreased [Recovering/Resolving]
